FAERS Safety Report 15472818 (Version 6)
Quarter: 2019Q4

REPORT INFORMATION
  Report Type: Spontaneous
  Country: US (occurrence: US)
  Receive Date: 20181008
  Receipt Date: 20191029
  Transmission Date: 20200122
  Serious: Yes (Other)
  Sender: FDA-Public Use
  Company Number: US-PFIZER INC-2018404460

PATIENT
  Age: 64 Year
  Sex: Male

DRUGS (2)
  1. CELEBREX [Concomitant]
     Active Substance: CELECOXIB
     Indication: RETINITIS
     Dosage: 200 MG, 1X/DAY
  2. LYRICA [Suspect]
     Active Substance: PREGABALIN
     Indication: RETINITIS
     Dosage: 300 MG, 2X/DAY
     Route: 048

REACTIONS (10)
  - Blindness unilateral [Unknown]
  - Malaise [Unknown]
  - Dysarthria [Unknown]
  - Nausea [Unknown]
  - Product use in unapproved indication [Unknown]
  - Off label use [Unknown]
  - Body height decreased [Unknown]
  - Tooth loss [Unknown]
  - Speech disorder [Unknown]
  - Toothache [Unknown]

NARRATIVE: CASE EVENT DATE: 2019
